FAERS Safety Report 25405303 (Version 1)
Quarter: 2025Q2

REPORT INFORMATION
  Report Type: Report from Study
  Country: US (occurrence: US)
  Receive Date: 20250606
  Receipt Date: 20250606
  Transmission Date: 20250717
  Serious: Yes (Other)
  Sender: TAKEDA
  Company Number: US-TAKEDA-2025TUS051188

PATIENT
  Sex: Male

DRUGS (1)
  1. FRUQUINTINIB [Suspect]
     Active Substance: FRUQUINTINIB
     Indication: Colon cancer

REACTIONS (8)
  - Cardiomyopathy [Unknown]
  - Cough [Unknown]
  - Insomnia [Unknown]
  - Restlessness [Unknown]
  - Malaise [Unknown]
  - Product dose omission issue [Unknown]
  - Fatigue [Unknown]
  - Asthenia [Unknown]
